FAERS Safety Report 9180817 (Version 1)
Quarter: 2013Q1

REPORT INFORMATION
  Report Type: Spontaneous
  Country: US (occurrence: None)
  Receive Date: 20130320
  Receipt Date: 20130320
  Transmission Date: 20140127
  Serious: Yes (Hospitalization)
  Sender: FDA-Public Use
  Company Number: None

PATIENT
  Age: 81 Year
  Sex: Male

DRUGS (11)
  1. METFORMIN (METFORMIN) [Suspect]
     Indication: DIABETES MELLITUS
     Route: 048
     Dates: start: 20100101, end: 20121227
  2. ASCRIPTIN(ASCRIPTIN) [Concomitant]
  3. CORDARONE (AMIODARONE HYDROCHLORIDE) [Concomitant]
  4. NORVASC (AMLODIPINE) [Concomitant]
  5. ASCRIPTIN (ASCRIPTIN) [Concomitant]
  6. CORDARONE (AMIODARONE HYDROCHLORIDE) [Concomitant]
  7. NORVASC (AMLODIPINE BESILATE) [Concomitant]
  8. OLPREZIDE (BENICARE HCT) [Concomitant]
  9. TOTALIP (ATORVASTATIN CALCIUM) [Concomitant]
  10. OMNIC (TAMSULOSIN HYDROCHLORIDE) [Concomitant]
  11. LANSOPRAZOLE (LANSOPRAZOLE) [Concomitant]

REACTIONS (1)
  - Renal failure acute [None]
